FAERS Safety Report 8999906 (Version 1)
Quarter: 2013Q1

REPORT INFORMATION
  Report Type: Report from Study
  Country: US (occurrence: US)
  Receive Date: 20130102
  Receipt Date: 20130102
  Transmission Date: 20140127
  Serious: No
  Sender: FDA-Public Use
  Company Number: US-VERTEX PHARMACEUTICALS INC.-2012-026793

PATIENT
  Age: 57 Year
  Sex: Male
  Weight: 97 kg

DRUGS (10)
  1. VX-950 (TELAPREVIR) [Suspect]
     Indication: HEPATITIS C
     Dosage: 750 MG, TID
     Route: 048
  2. PEGASYS [Suspect]
     Indication: HEPATITIS C
  3. RIBAVIRIN [Suspect]
     Indication: HEPATITIS C
     Dosage: 200 MG, UNK
  4. VIAGRA [Concomitant]
     Dosage: 100 MG, UNK
  5. IMITREX                            /01044801/ [Concomitant]
     Dosage: 50 MG, UNK
  6. MULTIVITAMIN                       /00097801/ [Concomitant]
  7. FISH OIL [Concomitant]
  8. VITAMIN D /00107901/ [Concomitant]
     Dosage: 1000 UT, UNK
  9. GLUCOSAMINE [Concomitant]
     Dosage: 1000 MG, UNK
  10. TURMERIC                           /01079602/ [Concomitant]
     Dosage: 500 MG, UNK

REACTIONS (3)
  - Burning sensation [Recovered/Resolved]
  - Rash generalised [Recovered/Resolved]
  - Urticaria [Recovered/Resolved]
